FAERS Safety Report 9509020 (Version 1)
Quarter: 2013Q3

REPORT INFORMATION
  Report Type: Spontaneous
  Country: US (occurrence: US)
  Receive Date: 20130909
  Receipt Date: 20130909
  Transmission Date: 20140515
  Serious: Yes (Hospitalization)
  Sender: FDA-Public Use
  Company Number: US-BRISTOL-MYERS SQUIBB COMPANY-17380288

PATIENT
  Age: 50 Year
  Sex: Female

DRUGS (3)
  1. ABILIFY [Suspect]
     Dosage: WAS ON A HIGHER DOSE BEFORE
  2. LITHIUM [Concomitant]
  3. LAMICTAL [Concomitant]

REACTIONS (2)
  - Tremor [Unknown]
  - Dyskinesia [Unknown]
